FAERS Safety Report 14577360 (Version 1)
Quarter: 2018Q1

REPORT INFORMATION
  Report Type: Spontaneous
  Country: US (occurrence: US)
  Receive Date: 20180226
  Receipt Date: 20180226
  Transmission Date: 20180509
  Serious: Yes (Hospitalization, Other)
  Sender: FDA-Public Use
  Company Number: None

PATIENT
  Age: 78 Year
  Sex: Female
  Weight: 47.25 kg

DRUGS (11)
  1. SYNTHROID [Concomitant]
     Active Substance: LEVOTHYROXINE SODIUM
  2. CAPECITABINE. [Suspect]
     Active Substance: CAPECITABINE
     Indication: BILE DUCT CANCER
     Route: 048
     Dates: start: 20180124, end: 20180224
  3. DEXAMETHASONE. [Concomitant]
     Active Substance: DEXAMETHASONE
  4. XARELTO [Concomitant]
     Active Substance: RIVAROXABAN
  5. MIRALAX [Concomitant]
     Active Substance: POLYETHYLENE GLYCOL 3350
  6. ZOLOFT [Concomitant]
     Active Substance: SERTRALINE HYDROCHLORIDE
  7. MORPHINE ER [Concomitant]
     Active Substance: MORPHINE
  8. OXYCODONE [Concomitant]
     Active Substance: OXYCODONE
  9. ZOFRAN [Concomitant]
     Active Substance: ONDANSETRON HYDROCHLORIDE
  10. NADOLOL. [Concomitant]
     Active Substance: NADOLOL
  11. FENOFIBRATE. [Concomitant]
     Active Substance: FENOFIBRATE

REACTIONS (1)
  - Disease progression [None]
